FAERS Safety Report 8275028-4 (Version None)
Quarter: 2012Q2

REPORT INFORMATION
  Report Type: 
  Country: None (occurrence: None)
  Receive Date: 20120411
  Receipt Date: 20120404
  Transmission Date: 20120825
  Serious: Yes (Other)
  Sender: FDA-Public Use
  Company Number: US-US-EMD SERONO, INC.-7121097

PATIENT
  Sex: Female
  Weight: 145 kg

DRUGS (4)
  1. ACTOS [Concomitant]
     Indication: DIABETES MELLITUS
  2. REBIF [Suspect]
     Indication: MULTIPLE SCLEROSIS
     Route: 058
     Dates: start: 20120118
  3. METFORMIN HCL [Concomitant]
     Indication: DIABETES MELLITUS
  4. GLIPIZIDE [Concomitant]
     Indication: DIABETES MELLITUS

REACTIONS (2)
  - INFLUENZA LIKE ILLNESS [None]
  - MYELITIS TRANSVERSE [None]
